FAERS Safety Report 8479493-9 (Version None)
Quarter: 2012Q2

REPORT INFORMATION
  Report Type: 
  Country: None (occurrence: None)
  Receive Date: 20120629
  Receipt Date: 20120620
  Transmission Date: 20120825
  Serious: Yes (Hospitalization)
  Sender: FDA-Public Use
  Company Number: JP-ACTELION-A-CH2012-67632

PATIENT
  Sex: Female

DRUGS (1)
  1. BRAZAVES [Suspect]
     Indication: NIEMANN-PICK DISEASE
     Dosage: UNK
     Route: 048
     Dates: start: 20120608

REACTIONS (3)
  - PYREXIA [None]
  - BRONCHOPNEUMONIA [None]
  - CHEST X-RAY ABNORMAL [None]
